FAERS Safety Report 24557126 (Version 1)
Quarter: 2024Q4

REPORT INFORMATION
  Report Type: Spontaneous
  Country: US (occurrence: US)
  Receive Date: 20241028
  Receipt Date: 20241028
  Transmission Date: 20250115
  Serious: No
  Sender: NOVO NORDISK
  Company Number: US-NOVOPROD-1206092

PATIENT
  Sex: Female

DRUGS (1)
  1. VAGIFEM [Suspect]
     Active Substance: ESTRADIOL
     Indication: Menopause
     Dosage: 10MCG
     Route: 067
     Dates: start: 2019

REACTIONS (5)
  - Vulvovaginal inflammation [Unknown]
  - Groin pain [Unknown]
  - Abdominal distension [Unknown]
  - Headache [Unknown]
  - Alopecia [Unknown]
